FAERS Safety Report 4702188-1 (Version None)
Quarter: 2005Q2

REPORT INFORMATION
  Report Type: 
  Country: None (occurrence: None)
  Receive Date: 20050628
  Receipt Date: 20050628
  Transmission Date: 20051028
  Serious: Yes (Other)
  Sender: FDA-Public Use
  Company Number: None

PATIENT
  Age: 35 Year
  Sex: Male

DRUGS (1)
  1. CLOZAPINE [Suspect]
     Indication: PSYCHOTIC DISORDER
     Dosage: 150MG   AM   200MG BEDTIME ORAL
     Route: 048
     Dates: start: 20050501, end: 20050605

REACTIONS (4)
  - CHEST X-RAY ABNORMAL [None]
  - ELECTROCARDIOGRAM ABNORMAL [None]
  - PYREXIA [None]
  - RESPIRATORY DISTRESS [None]
